FAERS Safety Report 10280274 (Version 3)
Quarter: 2014Q3

REPORT INFORMATION
  Report Type: Report from Study
  Country: JP (occurrence: JP)
  Receive Date: 20140707
  Receipt Date: 20140731
  Transmission Date: 20150326
  Serious: Yes (Hospitalization, Other)
  Sender: FDA-Public Use
  Company Number: JP-OTSUKA-JP-2014-14964

PATIENT
  Age: 70 Year
  Sex: Male
  Weight: 44.2 kg

DRUGS (12)
  1. SAMSCA [Suspect]
     Active Substance: TOLVAPTAN
     Indication: OEDEMA DUE TO CARDIAC DISEASE
     Dosage: 7.5 MG MILLIGRAM(S), QAM
     Route: 048
     Dates: start: 20130304, end: 20130308
  2. HANP [Concomitant]
     Active Substance: CARPERITIDE
     Indication: CARDIAC FAILURE
     Dosage: 0.02 UG/KG/MIN, DAILY DOSE
     Route: 041
     Dates: start: 20130301
  3. DOBUPUM [Concomitant]
     Active Substance: DOBUTAMINE HYDROCHLORIDE
     Indication: VENTRICULAR TACHYARRHYTHMIA
  4. HANP [Concomitant]
     Active Substance: CARPERITIDE
     Indication: VENTRICULAR TACHYARRHYTHMIA
  5. WARFARIN [Concomitant]
     Active Substance: WARFARIN
     Dosage: 1 MG MILLIGRAM(S), DAILY DOSE
     Route: 048
  6. DOBUPUM [Concomitant]
     Active Substance: DOBUTAMINE HYDROCHLORIDE
     Indication: CARDIAC FAILURE
     Dosage: 3 UG/KG/MIN, DAILY DOSE
     Route: 041
     Dates: start: 20130305
  7. AMIODARONE HYDROCHLORIDE. [Concomitant]
     Active Substance: AMIODARONE HYDROCHLORIDE
     Dosage: 100 MG MILLIGRAM(S), DAILY DOSE
     Route: 048
  8. SELARA [Concomitant]
     Active Substance: EPLERENONE
     Indication: CARDIAC FAILURE
     Dosage: 25 MG MILLIGRAM(S), DAILY DOSE
     Route: 048
  9. REPTOR [Concomitant]
     Dosage: 200 MG MILLIGRAM(S), DAILY DOSE
     Route: 048
  10. MAINTATE [Concomitant]
     Active Substance: BISOPROLOL FUMARATE
     Indication: CARDIAC FAILURE
     Dosage: 2.5 MG MILLIGRAM(S), DAILY DOSE
     Route: 048
  11. LUPRAC [Concomitant]
     Active Substance: TORSEMIDE
     Indication: CARDIAC FAILURE
     Dosage: 8 MG MILLIGRAM(S), DAILY DOSE
     Route: 048
  12. MEXITIL [Concomitant]
     Active Substance: MEXILETINE HYDROCHLORIDE
     Dosage: 200 MG MILLIGRAM(S), DAILY DOSE
     Route: 048

REACTIONS (3)
  - Liver disorder [Recovered/Resolved]
  - Nausea [Unknown]
  - Ventricular tachyarrhythmia [Recovered/Resolved with Sequelae]

NARRATIVE: CASE EVENT DATE: 20130306
